FAERS Safety Report 16754516 (Version 8)
Quarter: 2022Q4

REPORT INFORMATION
  Report Type: Spontaneous
  Country: PR (occurrence: PR)
  Receive Date: 20190829
  Receipt Date: 20221227
  Transmission Date: 20230113
  Serious: Yes (Hospitalization, Other)
  Sender: FDA-Public Use
  Company Number: PR-PFIZER INC-2019368502

PATIENT
  Age: 70 Year
  Sex: Female

DRUGS (4)
  1. XELJANZ XR [Suspect]
     Active Substance: TOFACITINIB CITRATE
     Indication: Rheumatoid arthritis
     Dosage: 11 MG, DAILY
     Route: 048
     Dates: start: 20181226
  2. XELJANZ XR [Suspect]
     Active Substance: TOFACITINIB CITRATE
     Dosage: 11 MG, DAILY
     Route: 048
  3. XELJANZ XR [Suspect]
     Active Substance: TOFACITINIB CITRATE
     Dosage: 11 MG
     Route: 048
     Dates: end: 2021
  4. XELJANZ XR [Suspect]
     Active Substance: TOFACITINIB CITRATE
     Dosage: 11 MG

REACTIONS (13)
  - Myocardial infarction [Recovering/Resolving]
  - Cerebrovascular accident [Recovered/Resolved]
  - Dyspnoea [Recovering/Resolving]
  - Intentional dose omission [Unknown]
  - Cardiovascular disorder [Unknown]
  - Oropharyngeal pain [Unknown]
  - Pain [Unknown]
  - Decreased appetite [Unknown]
  - Weight increased [Unknown]
  - Urinary tract infection [Recovered/Resolved]
  - Influenza [Unknown]
  - Chest discomfort [Unknown]
  - Troponin increased [Unknown]

NARRATIVE: CASE EVENT DATE: 20190825
